FAERS Safety Report 7788125-4 (Version None)
Quarter: 2011Q3

REPORT INFORMATION
  Report Type: 
  Country: None (occurrence: None)
  Receive Date: 20110929
  Receipt Date: 20110929
  Transmission Date: 20111222
  Serious: Yes (Hospitalization)
  Sender: FDA-Public Use
  Company Number: None

PATIENT
  Age: 57 Year
  Sex: Male
  Weight: 106 kg

DRUGS (1)
  1. LISINOPRIL [Suspect]
     Indication: HYPERTENSION
     Dosage: 10 MG EVERY DAY PO
     Route: 048
     Dates: start: 20110628, end: 20110701

REACTIONS (5)
  - OROPHARYNGEAL PAIN [None]
  - COUGH [None]
  - VULVITIS [None]
  - LIP SWELLING [None]
  - APHASIA [None]
